FAERS Safety Report 6956084-X (Version None)
Quarter: 2010Q3

REPORT INFORMATION
  Report Type: 
  Country: None (occurrence: None)
  Receive Date: 20100830
  Receipt Date: 20090902
  Transmission Date: 20110219
  Serious: Yes (Other)
  Sender: FDA-Public Use
  Company Number: US-AMGEN-QUU362847

PATIENT
  Age: 41 Year
  Sex: Male

DRUGS (5)
  1. NEUPOGEN [Suspect]
     Indication: BONE MARROW TRANSPLANT
     Dates: end: 20090902
  2. NEUPOGEN [Suspect]
     Indication: CHEMOTHERAPY
  3. UNSPECIFIED ANTIEMETIC [Concomitant]
  4. UNSPECIFIED MEDICATION [Concomitant]
  5. UNSPECIFIED ANTIBIOTIC [Concomitant]

REACTIONS (6)
  - ADVERSE DRUG REACTION [None]
  - BONE PAIN [None]
  - DRUG INEFFECTIVE [None]
  - HEADACHE [None]
  - NAUSEA [None]
  - VOMITING [None]
